FAERS Safety Report 17478356 (Version 1)
Quarter: 2020Q1

REPORT INFORMATION
  Report Type: Report from Study
  Country: CA (occurrence: CA)
  Receive Date: 20200228
  Receipt Date: 20200228
  Transmission Date: 20200409
  Serious: Yes (Other)
  Sender: FDA-Public Use
  Company Number: CA-JNJFOC-20190424066

PATIENT
  Age: 57 Year
  Sex: Female

DRUGS (3)
  1. STELARA [Suspect]
     Active Substance: USTEKINUMAB
     Indication: PSORIATIC ARTHROPATHY
     Dosage: STRENGTH = 90 MG
     Route: 058
     Dates: start: 20150513
  2. STELARA [Suspect]
     Active Substance: USTEKINUMAB
     Route: 058
     Dates: start: 20170622
  3. STELARA [Suspect]
     Active Substance: USTEKINUMAB
     Route: 058

REACTIONS (9)
  - Psoriatic arthropathy [Not Recovered/Not Resolved]
  - Contusion [Unknown]
  - Off label use [Unknown]
  - Fall [Unknown]
  - Herpes zoster [Recovered/Resolved]
  - Product packaging quantity issue [Unknown]
  - Product use issue [Unknown]
  - Arthropathy [Unknown]
  - Needle issue [Unknown]

NARRATIVE: CASE EVENT DATE: 20190508
